FAERS Safety Report 10671163 (Version 2)
Quarter: 2015Q2

REPORT INFORMATION
  Report Type: Other
  Country: IT (occurrence: IT)
  Receive Date: 20141223
  Receipt Date: 20150519
  Transmission Date: 20150821
  Serious: Yes (Death, Hospitalization)
  Sender: FDA-Public Use
  Company Number: IT-MYLANLABS-2014M1014739

PATIENT

DRUGS (4)
  1. PARACETAMOL [Suspect]
     Active Substance: ACETAMINOPHEN
     Indication: PYREXIA
     Dates: start: 20141202, end: 20141202
  2. FUROSEMIDE. [Suspect]
     Active Substance: FUROSEMIDE
     Indication: PRODUCT USED FOR UNKNOWN INDICATION
     Dates: start: 20141202, end: 20141202
  3. CEFTRIAXONE MYLAN GENERICS [Suspect]
     Active Substance: CEFTRIAXONE
     Dosage: 1 DF, EVERY OTHER DAY
     Dates: start: 20141202, end: 20141202
  4. CLARITROMICINA [Suspect]
     Active Substance: CLARITHROMYCIN
     Indication: PYREXIA
     Dates: start: 20141130, end: 20141202

REACTIONS (5)
  - Dyspnoea [Recovered/Resolved]
  - Tongue oedema [Recovered/Resolved]
  - Gastroenteritis [Recovered/Resolved]
  - Death [Fatal]
  - Hypercreatininaemia [Recovered/Resolved]

NARRATIVE: CASE EVENT DATE: 20141202
